FAERS Safety Report 8778913 (Version 1)
Quarter: 2012Q4

REPORT INFORMATION
  Report Type: 
  Country: US (occurrence: US)
  Receive Date: 20120912
  Receipt Date: 20120912
  Transmission Date: 20130627
  Serious: No
  Sender: FDA-Public Use
  Company Number: US-ASTRAZENECA-2012SE65878

PATIENT
  Age: 48 Year
  Sex: Female

DRUGS (2)
  1. SYMBICORT PMDI [Suspect]
     Dosage: UNKNOWN FREQUENCY
     Route: 055
  2. ALBUTEROL [Concomitant]

REACTIONS (2)
  - Dyspnoea [Unknown]
  - Drug dose omission [Unknown]
